FAERS Safety Report 23730305 (Version 1)
Quarter: 2024Q2

REPORT INFORMATION
  Report Type: Other
  Country: US (occurrence: US)
  Receive Date: 20240411
  Receipt Date: 20240411
  Transmission Date: 20240716
  Serious: Yes (Death)
  Sender: FDA-Public Use
  Company Number: US-ALVOGEN-2024093424

PATIENT
  Age: 51 Year
  Sex: Male

DRUGS (5)
  1. GABAPENTIN [Suspect]
     Active Substance: GABAPENTIN
     Indication: Suicide attempt
     Route: 048
  2. METFORMIN [Suspect]
     Active Substance: METFORMIN HYDROCHLORIDE
     Indication: Suicide attempt
     Route: 048
  3. SILDENAFIL [Suspect]
     Active Substance: SILDENAFIL
     Indication: Suicide attempt
     Route: 048
  4. BACLOFEN [Suspect]
     Active Substance: BACLOFEN
     Indication: Suicide attempt
     Route: 048
  5. ALCOHOL [Suspect]
     Active Substance: ALCOHOL
     Indication: Suicide attempt
     Dosage: BEVERAGE
     Route: 048

REACTIONS (1)
  - Completed suicide [Fatal]
